FAERS Safety Report 17949464 (Version 1)
Quarter: 2020Q2

REPORT INFORMATION
  Report Type: Spontaneous
  Country: FR (occurrence: FR)
  Receive Date: 20200626
  Receipt Date: 20200626
  Transmission Date: 20200714
  Serious: Yes (Congenital Anomaly, Other)
  Sender: FDA-Public Use
  Company Number: FR-TEVA-2020-FR-1791481

PATIENT
  Sex: Female

DRUGS (6)
  1. AMOXICILLINE [Suspect]
     Active Substance: AMOXICILLIN
     Indication: PRODUCT USED FOR UNKNOWN INDICATION
     Dosage: 3 GRAM
     Route: 064
     Dates: start: 20200415, end: 20200422
  2. ATOSIBAN [Suspect]
     Active Substance: ATOSIBAN
     Indication: TOCOLYSIS
     Route: 064
     Dates: start: 20200417, end: 20200420
  3. SPASFON (PHLOROGLUCINOL) [Suspect]
     Active Substance: PHLOROGLUCINOL
     Indication: ABDOMINAL PAIN
     Dosage: 6 DOSAGE FORMS
     Route: 064
     Dates: start: 20200413, end: 20200414
  4. CELESTENE (BETAMETHASONE) [Suspect]
     Active Substance: BETAMETHASONE
     Indication: PRODUCT USED FOR UNKNOWN INDICATION
     Dosage: 4 MG
     Route: 064
     Dates: start: 20200412, end: 20200413
  5. POLYSILANE [Concomitant]
     Route: 064
  6. NIFEDIPINE. [Suspect]
     Active Substance: NIFEDIPINE
     Indication: TOCOLYSIS
     Route: 064
     Dates: start: 20200412, end: 20200414

REACTIONS (1)
  - Ductus arteriosus premature closure [Recovered/Resolved]

NARRATIVE: CASE EVENT DATE: 20200421
